FAERS Safety Report 4983519-4 (Version None)
Quarter: 2006Q2

REPORT INFORMATION
  Report Type: 
  Country: None (occurrence: None)
  Receive Date: 20060419
  Receipt Date: 20060410
  Transmission Date: 20061013
  Serious: Yes (Death)
  Sender: FDA-Public Use
  Company Number: 2006048658

PATIENT
  Age: 65 Year
  Sex: Female
  Weight: 88 kg

DRUGS (2)
  1. FRAGMIN [Suspect]
     Indication: SURGERY
     Dosage: SEE IMAGE
     Route: 058
     Dates: start: 20060329, end: 20060329
  2. FRAGMIN [Suspect]
     Indication: SURGERY
     Dosage: SEE IMAGE
     Route: 058
     Dates: start: 20060330

REACTIONS (1)
  - PULMONARY EMBOLISM [None]
